FAERS Safety Report 7348322-9 (Version None)
Quarter: 2011Q1

REPORT INFORMATION
  Report Type: 
  Country: None (occurrence: None)
  Receive Date: 20110311
  Receipt Date: 20110308
  Transmission Date: 20110831
  Serious: Yes (Hospitalization)
  Sender: FDA-Public Use
  Company Number: FR-PFIZER INC-2008034083

PATIENT
  Age: 32 Year
  Sex: Male

DRUGS (12)
  1. OFLOCET [Suspect]
     Route: 048
     Dates: start: 20080125, end: 20080127
  2. TIENAM [Suspect]
     Dates: start: 20080130, end: 20080219
  3. FOLIC ACID [Concomitant]
  4. CALCIDIA [Concomitant]
  5. RENAGEL [Concomitant]
  6. TAMOXIFEN CITRATE [Suspect]
     Dosage: 20 MG, DAILY
     Route: 048
     Dates: start: 20080209, end: 20080303
  7. AMLOR [Suspect]
     Route: 048
  8. ATENOLOL [Suspect]
     Route: 048
  9. TRIATEC [Suspect]
     Route: 048
  10. VANCOMYCIN [Suspect]
     Dates: start: 20080127, end: 20080219
  11. EPOETIN BETA [Concomitant]
     Route: 058
     Dates: start: 20030901, end: 20080101
  12. KAYEXALATE [Concomitant]

REACTIONS (2)
  - APLASTIC ANAEMIA [None]
  - SCLEROSING ENCAPSULATING PERITONITIS [None]
